FAERS Safety Report 13665193 (Version 1)
Quarter: 2017Q2

REPORT INFORMATION
  Report Type: Spontaneous
  Country: US (occurrence: US)
  Receive Date: 20170619
  Receipt Date: 20170619
  Transmission Date: 20170830
  Serious: Yes (Life-Threatening, Hospitalization, Disabling)
  Sender: FDA-Public Use
  Company Number: None

PATIENT
  Age: 38 Year
  Sex: Female
  Weight: 51.75 kg

DRUGS (6)
  1. ALPRAZOLAM. [Suspect]
     Active Substance: ALPRAZOLAM
     Dosage: ?          QUANTITY:60 TABLET(S);?
     Route: 048
  2. MOTRIN [Concomitant]
     Active Substance: IBUPROFEN
  3. Z- DRUG [Concomitant]
  4. BENZODIAZEPINE [Concomitant]
     Active Substance: BENZODIAZEPINE
  5. CLONAZEPAM. [Suspect]
     Active Substance: CLONAZEPAM
     Dosage: ?          QUANTITY:90 TABLET(S);?
     Route: 048
  6. IMODIUM [Concomitant]
     Active Substance: LOPERAMIDE HYDROCHLORIDE

REACTIONS (47)
  - Muscle spasms [None]
  - Rebound effect [None]
  - Gastrointestinal disorder [None]
  - Suicide attempt [None]
  - Homicidal ideation [None]
  - Depersonalisation/derealisation disorder [None]
  - Tremor [None]
  - Vertigo [None]
  - Diarrhoea [None]
  - Loss of personal independence in daily activities [None]
  - Haemorrhage [None]
  - Screaming [None]
  - Sensory disturbance [None]
  - Impaired work ability [None]
  - Withdrawal syndrome [None]
  - Obsessive-compulsive disorder [None]
  - Insomnia [None]
  - Reading disorder [None]
  - Agoraphobia [None]
  - Drug tolerance increased [None]
  - Paranoia [None]
  - Dizziness [None]
  - Panic reaction [None]
  - Mood altered [None]
  - Irritability [None]
  - Loss of employment [None]
  - Impaired self-care [None]
  - Derealisation [None]
  - Feeling abnormal [None]
  - Suicidal ideation [None]
  - Depression [None]
  - Fear [None]
  - Personality change [None]
  - Weight decreased [None]
  - Akathisia [None]
  - Rash [None]
  - Trigger finger [None]
  - Cognitive disorder [None]
  - Memory impairment [None]
  - Disturbance in attention [None]
  - Hypersomnia [None]
  - Aggression [None]
  - Neuropathy peripheral [None]
  - Anger [None]
  - Arthralgia [None]
  - Tachyphrenia [None]
  - Skin burning sensation [None]

NARRATIVE: CASE EVENT DATE: 20101010
